FAERS Safety Report 17712876 (Version 4)
Quarter: 2022Q1

REPORT INFORMATION
  Report Type: Spontaneous
  Country: US (occurrence: US)
  Receive Date: 20200427
  Receipt Date: 20220208
  Transmission Date: 20220423
  Serious: Yes (Other)
  Sender: FDA-Public Use
  Company Number: US-GILEAD-2020-0460258

PATIENT
  Age: 57 Year
  Sex: Male
  Weight: 94.785 kg

DRUGS (36)
  1. TRUVADA [Suspect]
     Active Substance: EMTRICITABINE\TENOFOVIR DISOPROXIL FUMARATE
     Indication: Prophylaxis against HIV infection
     Dosage: UNK
     Route: 048
     Dates: start: 20150326, end: 2019
  2. DESCOVY [Concomitant]
     Active Substance: EMTRICITABINE\TENOFOVIR ALAFENAMIDE FUMARATE
  3. IMURAN [Concomitant]
     Active Substance: AZATHIOPRINE
  4. ACETAMINOPHEN [Concomitant]
     Active Substance: ACETAMINOPHEN
  5. METHOTREXATE [Concomitant]
     Active Substance: METHOTREXATE
  6. METHYLPREDNISOLONE [Concomitant]
     Active Substance: METHYLPREDNISOLONE
  7. OMEPRAZOLE [Concomitant]
     Active Substance: OMEPRAZOLE
  8. PREDNISONE [Concomitant]
     Active Substance: PREDNISONE
  9. CHLORDIAZEPOXIDE [Concomitant]
     Active Substance: CHLORDIAZEPOXIDE
  10. RESTORIL [Concomitant]
     Active Substance: TEMAZEPAM
  11. ANDROGEL [Concomitant]
     Active Substance: TESTOSTERONE
  12. TRAZODONE [Concomitant]
     Active Substance: TRAZODONE HYDROCHLORIDE
  13. FOLIC ACID [Concomitant]
     Active Substance: FOLIC ACID
  14. LEVAQUIN [Concomitant]
     Active Substance: LEVOFLOXACIN
  15. METROGEL [Concomitant]
     Active Substance: METRONIDAZOLE
  16. ATIVAN [Concomitant]
     Active Substance: LORAZEPAM
  17. MICROZIDE [Concomitant]
     Active Substance: HYDROCHLOROTHIAZIDE
  18. DICLOFENAC SODIUM [Concomitant]
     Active Substance: DICLOFENAC SODIUM
  19. ACETAMINOPHEN\HYDROCODONE [Concomitant]
     Active Substance: ACETAMINOPHEN\HYDROCODONE
  20. ACETAMINOPHEN\OXYCODONE HYDROCHLORIDE [Concomitant]
     Active Substance: ACETAMINOPHEN\OXYCODONE HYDROCHLORIDE
  21. CHERATUSSIN AC [Concomitant]
     Active Substance: CODEINE PHOSPHATE\GUAIFENESIN
  22. ZOFRAN [Concomitant]
     Active Substance: ONDANSETRON HYDROCHLORIDE
  23. FLEXERIL [Concomitant]
     Active Substance: CYCLOBENZAPRINE HYDROCHLORIDE
  24. LIDOCAINE [Concomitant]
     Active Substance: LIDOCAINE
  25. SOMA [Concomitant]
     Active Substance: CARISOPRODOL
  26. CEPHALEXIN [Concomitant]
     Active Substance: CEPHALEXIN
  27. CLINDAMYCIN [Concomitant]
     Active Substance: CLINDAMYCIN
  28. CAVERJECT IMPULSE [Concomitant]
     Active Substance: ALPROSTADIL
  29. GIAZO [Concomitant]
     Active Substance: BALSALAZIDE DISODIUM
  30. GABAPENTIN [Concomitant]
     Active Substance: GABAPENTIN
  31. SUPREP BOWEL PREP [Concomitant]
     Active Substance: MAGNESIUM SULFATE\POTASSIUM SULFATE\SODIUM SULFATE
  32. PROTONIX [Concomitant]
     Active Substance: PANTOPRAZOLE SODIUM
  33. CIPROFLOXACIN [Concomitant]
     Active Substance: CIPROFLOXACIN
  34. FAMCICLOVIR [Concomitant]
     Active Substance: FAMCICLOVIR
  35. OLOPATADINE [Concomitant]
     Active Substance: OLOPATADINE
  36. SILDENAFIL [Concomitant]
     Active Substance: SILDENAFIL

REACTIONS (16)
  - Rib fracture [Not Recovered/Not Resolved]
  - Foot fracture [Not Recovered/Not Resolved]
  - Osteonecrosis [Unknown]
  - Chondroplasty [Unknown]
  - Osteopenia [Not Recovered/Not Resolved]
  - Osteoarthritis [Not Recovered/Not Resolved]
  - Bone density decreased [Not Recovered/Not Resolved]
  - Pain in extremity [Unknown]
  - Arthropathy [Unknown]
  - Arthroscopy [Not Recovered/Not Resolved]
  - Tendon rupture [Unknown]
  - Bone loss [Unknown]
  - Back pain [Unknown]
  - Pain [Not Recovered/Not Resolved]
  - Emotional distress [Not Recovered/Not Resolved]
  - Mobility decreased [Unknown]

NARRATIVE: CASE EVENT DATE: 20151217
